FAERS Safety Report 13738379 (Version 1)
Quarter: 2017Q3

REPORT INFORMATION
  Report Type: Spontaneous
  Country: BR (occurrence: BR)
  Receive Date: 20170710
  Receipt Date: 20170710
  Transmission Date: 20171127
  Serious: Yes (Other)
  Sender: FDA-Public Use
  Company Number: PHHY2011BR33618

PATIENT
  Sex: Female

DRUGS (3)
  1. DAFLON [Concomitant]
     Active Substance: DIOSMIN\HESPERIDIN
  2. EYE DROPS [Concomitant]
     Active Substance: UNSPECIFIED INGREDIENT
  3. HYDERGINE [Suspect]
     Active Substance: ERGOLOID MESYLATES
     Indication: MEMORY IMPAIRMENT
     Dosage: 1 DF, DAILY
     Route: 048

REACTIONS (5)
  - Optic ischaemic neuropathy [Unknown]
  - Incoherent [Recovered/Resolved]
  - Petit mal epilepsy [Recovered/Resolved]
  - Malaise [Recovered/Resolved]
  - Dysarthria [Recovered/Resolved]
